FAERS Safety Report 5607604-9 (Version None)
Quarter: 2008Q1

REPORT INFORMATION
  Report Type: 
  Country: None (occurrence: None)
  Receive Date: 20080128
  Receipt Date: 20080128
  Transmission Date: 20080703
  Serious: Yes (Death, Life-Threatening, Hospitalization)
  Sender: FDA-Public Use
  Company Number: None

PATIENT
  Sex: Male
  Weight: 81.1939 kg

DRUGS (2)
  1. ERBITUX [Suspect]
     Indication: NON-SMALL CELL LUNG CANCER
     Dosage: 788 WEEKLY IV
     Route: 042
     Dates: start: 20071221, end: 20071221
  2. DASATINIB BMS [Suspect]
     Indication: NON-SMALL CELL LUNG CANCER
     Dosage: 200MG DAILY PO
     Route: 048
     Dates: start: 20071220, end: 20071223

REACTIONS (8)
  - BLOOD CULTURE POSITIVE [None]
  - CULTURE URINE POSITIVE [None]
  - HYPONATRAEMIA [None]
  - MALIGNANT NEOPLASM PROGRESSION [None]
  - PERICARDIAL EFFUSION MALIGNANT [None]
  - RENAL FAILURE [None]
  - RESPIRATORY FAILURE [None]
  - SPUTUM CULTURE POSITIVE [None]
